FAERS Safety Report 14782419 (Version 1)
Quarter: 2018Q2

REPORT INFORMATION
  Report Type: Spontaneous
  Country: FR (occurrence: FR)
  Receive Date: 20180420
  Receipt Date: 20180420
  Transmission Date: 20180711
  Serious: Yes (Other)
  Sender: FDA-Public Use
  Company Number: FR-MERCK KGAA-2046124

PATIENT
  Age: 72 Year
  Sex: Female

DRUGS (1)
  1. NOVOTHYROX [Suspect]
     Active Substance: LEVOTHYROXINE SODIUM
     Indication: POST PROCEDURAL HYPOTHYROIDISM

REACTIONS (16)
  - Impatience [None]
  - Night sweats [None]
  - Insomnia [None]
  - Muscle spasms [None]
  - Fluid retention [None]
  - Hot flush [None]
  - Pruritus [None]
  - Dyspnoea [None]
  - Hypokinesia [None]
  - Erythema [None]
  - Joint stiffness [None]
  - Decreased interest [None]
  - Irritability [None]
  - Gait disturbance [None]
  - Loss of personal independence in daily activities [None]
  - Arrhythmia [None]
